FAERS Safety Report 23636485 (Version 3)
Quarter: 2024Q1

REPORT INFORMATION
  Report Type: Spontaneous
  Country: JP (occurrence: JP)
  Receive Date: 20240315
  Receipt Date: 20240326
  Transmission Date: 20240410
  Serious: Yes (Death, Life-Threatening, Other)
  Sender: FDA-Public Use
  Company Number: JP-PFIZER INC-PV202400035434

PATIENT
  Age: 63 Year
  Sex: Male

DRUGS (3)
  1. VORICONAZOLE [Interacting]
     Active Substance: VORICONAZOLE
     Indication: Bronchopulmonary aspergillosis
     Dosage: 400 MG; STARTED ON DAY 52
  2. LETERMOVIR [Interacting]
     Active Substance: LETERMOVIR
     Dosage: UNK
  3. AMPHOTERICIN B [Concomitant]
     Active Substance: AMPHOTERICIN B
     Indication: Bronchopulmonary aspergillosis
     Dosage: UNK

REACTIONS (3)
  - Intracranial aneurysm [Fatal]
  - Drug interaction [Unknown]
  - Drug level below therapeutic [Unknown]
